FAERS Safety Report 4541840-8 (Version None)
Quarter: 2004Q4

REPORT INFORMATION
  Report Type: 
  Country: None (occurrence: None)
  Receive Date: 20041230
  Receipt Date: 20041223
  Transmission Date: 20050328
  Serious: Yes (Other)
  Sender: FDA-Public Use
  Company Number: PHBS2004IE17191

PATIENT
  Sex: Male

DRUGS (2)
  1. AREDIA [Suspect]
     Route: 064
  2. OPIOIDS [Concomitant]
     Route: 064

REACTIONS (5)
  - BLOOD CALCIUM INCREASED [None]
  - CAESAREAN SECTION [None]
  - DRUG EXPOSURE DURING PREGNANCY [None]
  - MALAISE [None]
  - PREMATURE BABY [None]
